FAERS Safety Report 9895976 (Version 2)
Quarter: 2014Q1

REPORT INFORMATION
  Report Type: Spontaneous
  Country: US (occurrence: US)
  Receive Date: 20140213
  Receipt Date: 20140213
  Transmission Date: 20141002
  Serious: Yes (Other)
  Sender: FDA-Public Use
  Company Number: US-BRISTOL-MYERS SQUIBB COMPANY-17409160

PATIENT
  Age: 63 Year
  Sex: Female

DRUGS (12)
  1. ORENCIA FOR INJ [Suspect]
     Indication: RHEUMATOID ARTHRITIS
     Dosage: LAST INF: AROUND 15DEC12
     Route: 042
     Dates: start: 201212, end: 201302
  2. ALBUTEROL [Concomitant]
     Dosage: 1DF:90MCG/ACT AERS;?INHALE 1TO2 PUFFS EVERY 4TO6HRS
  3. AZITHROMYCIN [Concomitant]
     Dosage: 2 TAB AT DAY 1;?1 TABS A DAY FOR FOUR DAYS
     Route: 048
  4. CLONAZEPAM [Concomitant]
     Dosage: 1/2 TABS PER DAY
     Route: 048
  5. CLOTRIMAZOLE [Concomitant]
     Dosage: MOUTH/THROAT LOZENGE
     Dates: start: 20121231
  6. CRESTOR [Concomitant]
     Dosage: 1/2 TABS DAILY
     Route: 048
     Dates: start: 20121119
  7. ERGOCALCIFEROL [Concomitant]
     Dosage: 1DF:50000 UNITS;?CAPS
     Route: 048
     Dates: start: 20120904
  8. ESTROGEL GEL [Concomitant]
  9. FOLIC ACID [Concomitant]
     Route: 048
  10. METHYLPREDNISOLONE [Concomitant]
     Route: 048
  11. PRILOSEC [Concomitant]
     Dosage: CAPS DELAYED RELEASE
     Route: 048
  12. TRAZODONE HCL [Concomitant]
     Dosage: 1/2 TABS AT BET TIME
     Route: 048

REACTIONS (2)
  - Pneumonia [Unknown]
  - Skin lesion [Unknown]
